FAERS Safety Report 8017474 (Version 2)
Quarter: 2013Q2

REPORT INFORMATION
  Report Type: Spontaneous
  Country: US (occurrence: None)
  Receive Date: 20110616
  Receipt Date: 20120921
  Transmission Date: 20140414
  Serious: Yes (Other)
  Sender: FDA-Public Use
  Company Number: 20110447

PATIENT
  Age: 38 Year
  Sex: Female

DRUGS (2)
  1. DEXAMETHASONE SODIUM PHOSPHATE [Suspect]
     Dosage: IONTOPHORESIS
     Route: 044
  2. CORTISONE, UNKNOWN INJECTION NOS UNK [Concomitant]

REACTIONS (1)
  - TENDON RUPTURE [None]
